FAERS Safety Report 20304174 (Version 1)
Quarter: 2022Q1

REPORT INFORMATION
  Report Type: Spontaneous
  Country: US (occurrence: None)
  Receive Date: 20220105
  Receipt Date: 20220105
  Transmission Date: 20220423
  Serious: Yes (Death)
  Sender: FDA-Public Use
  Company Number: None

PATIENT
  Sex: Male

DRUGS (1)
  1. PROLIA [Suspect]
     Active Substance: DENOSUMAB
     Indication: Senile osteoporosis
     Dosage: 60MG/ML ?INJECT 60 MG UNDER THE SKIN (SUBCUTANEOUS INJECTION) EVERY 6 MONTHS?
     Route: 058
     Dates: start: 20190530, end: 202201

REACTIONS (1)
  - Death [None]
